FAERS Safety Report 21844388 (Version 4)
Quarter: 2023Q1

REPORT INFORMATION
  Report Type: Spontaneous
  Country: GB (occurrence: GB)
  Receive Date: 20230110
  Receipt Date: 20230217
  Transmission Date: 20230417
  Serious: Yes (Hospitalization, Other)
  Sender: FDA-Public Use
  Company Number: GB-MYLANLABS-2023M1000678

PATIENT
  Age: 37 Year
  Sex: Female

DRUGS (8)
  1. CLOZARIL [Suspect]
     Active Substance: CLOZAPINE
     Indication: Schizoaffective disorder bipolar type
     Dosage: UNK
     Route: 048
     Dates: start: 20220119, end: 202212
  2. CLOZARIL [Suspect]
     Active Substance: CLOZAPINE
     Dosage: 350 MILLIGRAM, QD (100MG AM AND 150MG NOCTE)
     Route: 065
  3. CLONAZEPAM [Concomitant]
     Active Substance: CLONAZEPAM
     Dosage: 500 MICROGRAM, QD (AT EVENING)
     Route: 065
  4. METFORMIN [Concomitant]
     Active Substance: METFORMIN HYDROCHLORIDE
     Dosage: 500 MILLIGRAM, BID
     Route: 065
  5. LITHIUM CARBONATE CAMBER [Concomitant]
     Dosage: 800 MILLIGRAM, QD (AT EVENING)
     Route: 065
  6. PROCHLORPERAZINE [Concomitant]
     Active Substance: PROCHLORPERAZINE
     Dosage: 10 MILLIGRAM, TDS
     Route: 065
  7. Hyoscine bromide [Concomitant]
     Dosage: 300 MICROGRAM, BID
     Route: 065
  8. BONJELA [Concomitant]
     Active Substance: CETALKONIUM CHLORIDE\CHOLINE SALICYLATE\MENTHOL
     Dosage: UNK (TWICE DAILY)
     Route: 065

REACTIONS (8)
  - Malaise [Unknown]
  - Oropharyngeal pain [Unknown]
  - Ear infection [Unknown]
  - Cough [Unknown]
  - Taste disorder [Unknown]
  - Decreased appetite [Unknown]
  - Therapy interrupted [Unknown]
  - Off label use [Unknown]
